FAERS Safety Report 7180351-0 (Version None)
Quarter: 2010Q4

REPORT INFORMATION
  Report Type: 
  Country: None (occurrence: None)
  Receive Date: 20101221
  Receipt Date: 20101217
  Transmission Date: 20110411
  Serious: Yes (Other)
  Sender: FDA-Public Use
  Company Number: A0900381A

PATIENT
  Age: 83 Year
  Sex: Female

DRUGS (8)
  1. VERAMYST [Suspect]
     Dosage: 1APP PER DAY
     Route: 045
     Dates: start: 20101214, end: 20101216
  2. PREMARIN [Concomitant]
  3. PROMETRIUM [Concomitant]
  4. LOVASTATIN [Concomitant]
  5. MICARDIS [Concomitant]
  6. LEVOTHYROXINE SODIUM [Concomitant]
  7. LORAZEPAM [Concomitant]
  8. TRAZODONE HCL [Concomitant]

REACTIONS (1)
  - ASTHMA [None]
